FAERS Safety Report 4335661-9 (Version None)
Quarter: 2004Q2

REPORT INFORMATION
  Report Type: 
  Country: None (occurrence: None)
  Receive Date: 20040406
  Receipt Date: 20040323
  Transmission Date: 20050107
  Serious: Yes (Other)
  Sender: FDA-Public Use
  Company Number: US-SHR-04-023006

PATIENT
  Age: 19 Year
  Sex: Female
  Weight: 55.3 kg

DRUGS (1)
  1. YASMIN [Suspect]
     Indication: PREMENSTRUAL SYNDROME
     Dosage: 1 TAB(S),1X/DAY
     Route: 048
     Dates: start: 20030801

REACTIONS (2)
  - ARRHYTHMIA [None]
  - SYNCOPE [None]
